FAERS Safety Report 24405279 (Version 1)
Quarter: 2024Q4

REPORT INFORMATION
  Report Type: Spontaneous
  Country: US (occurrence: None)
  Receive Date: 20241004
  Receipt Date: 20241004
  Transmission Date: 20250115
  Serious: Yes (unspecified)
  Sender: Public
  Company Number: None

PATIENT
  Age: 71 Year
  Sex: Female
  Weight: 85.95 kg

DRUGS (23)
  1. NEBIVOLOL [Suspect]
     Active Substance: NEBIVOLOL
     Indication: Hypertension
     Dosage: 1 TABLET TWICE A DAY ORAL
     Route: 048
     Dates: start: 20241002, end: 20241004
  2. Loop Recorder Hypoglossal Nerve Stimulator for Sleep Apnea [Concomitant]
  3. CLONIDINE [Concomitant]
     Active Substance: CLONIDINE
  4. HYDRALAZINE [Concomitant]
     Active Substance: HYDRALAZINE HYDROCHLORIDE
  5. SPIRONOLACTONE [Concomitant]
     Active Substance: SPIRONOLACTONE
  6. LOSARTAN [Concomitant]
     Active Substance: LOSARTAN
  7. LEVOTHYROXINE [Concomitant]
     Active Substance: LEVOTHYROXINE
  8. ALENDRONATE [Concomitant]
     Active Substance: ALENDRONATE SODIUM
  9. VITAMIN A [Concomitant]
     Active Substance: VITAMIN A
  10. Vitamins b [Concomitant]
  11. c [Concomitant]
  12. VITAMIN D3 [Concomitant]
     Active Substance: CHOLECALCIFEROL
  13. TOCOPHEROL [Concomitant]
     Active Substance: TOCOPHEROL
  14. JWH-018 [Concomitant]
     Active Substance: JWH-018
  15. IODINE [Concomitant]
     Active Substance: IODINE
  16. CALCIUM [Concomitant]
     Active Substance: CALCIUM
  17. MAGNESIUM [Concomitant]
     Active Substance: MAGNESIUM
  18. ZINC [Concomitant]
     Active Substance: ZINC
  19. BORON [Concomitant]
     Active Substance: BORON
  20. Black Cohash [Concomitant]
  21. GABA [Concomitant]
     Active Substance: HOMEOPATHICS
  22. COENZYME Q10 [Concomitant]
     Active Substance: DIETARY SUPPLEMENT\UBIDECARENONE
  23. MegaRed [Concomitant]

REACTIONS (5)
  - Headache [None]
  - Nasal congestion [None]
  - Epistaxis [None]
  - Blood pressure fluctuation [None]
  - Constipation [None]

NARRATIVE: CASE EVENT DATE: 20241002
